FAERS Safety Report 14874004 (Version 1)
Quarter: 2018Q2

REPORT INFORMATION
  Report Type: Spontaneous
  Country: US (occurrence: US)
  Receive Date: 20180510
  Receipt Date: 20180510
  Transmission Date: 20180711
  Serious: Yes (Life-Threatening, Hospitalization, Other)
  Sender: FDA-Public Use
  Company Number: US-DENTSPLY-2018SCDP000072

PATIENT

DRUGS (9)
  1. ETHOXYDIGLYCOL [Suspect]
     Active Substance: DIETHYLENE GLYCOL MONOETHYL ETHER
     Indication: PRODUCT USED FOR UNKNOWN INDICATION
     Dosage: UNK
  2. VERSAPRO (INACTIVE INGREDIENT) [Suspect]
     Active Substance: UNSPECIFIED INGREDIENT
     Indication: PRODUCT USED FOR UNKNOWN INDICATION
     Dosage: UNK
  3. CLONIDINE. [Suspect]
     Active Substance: CLONIDINE
     Indication: PRODUCT USED FOR UNKNOWN INDICATION
     Dosage: UNK
  4. GABAPENTIN. [Suspect]
     Active Substance: GABAPENTIN
     Indication: PRODUCT USED FOR UNKNOWN INDICATION
     Dosage: UNK
  5. CAMPHOR [Suspect]
     Active Substance: CAMPHOR
     Indication: PRODUCT USED FOR UNKNOWN INDICATION
     Dosage: UNK
  6. LIDOCAINE. [Suspect]
     Active Substance: LIDOCAINE
     Indication: PRODUCT USED FOR UNKNOWN INDICATION
     Dosage: UNK
  7. KETOPROFEN. [Suspect]
     Active Substance: KETOPROFEN
     Indication: PRODUCT USED FOR UNKNOWN INDICATION
     Dosage: UNK
  8. PRILOCAINE [Suspect]
     Active Substance: PRILOCAINE
     Indication: PRODUCT USED FOR UNKNOWN INDICATION
     Dosage: UNK
  9. MENTHOL. [Suspect]
     Active Substance: MENTHOL
     Indication: PRODUCT USED FOR UNKNOWN INDICATION
     Dosage: UNK

REACTIONS (14)
  - Accidental exposure to product by child [Recovered/Resolved]
  - Heart rate increased [Recovered/Resolved]
  - Electrocardiogram T wave inversion [Recovered/Resolved]
  - Coma [Recovered/Resolved]
  - Sinus bradycardia [Recovered/Resolved]
  - Altered state of consciousness [Recovered/Resolved]
  - Somnolence [Recovered/Resolved]
  - Atrioventricular block first degree [Recovered/Resolved]
  - Hypothermia [Recovered/Resolved]
  - Agitation [Recovered/Resolved]
  - Areflexia [Recovered/Resolved]
  - Hypotension [Recovered/Resolved]
  - Mental status changes [Recovered/Resolved]
  - Apnoea [Recovered/Resolved]
